FAERS Safety Report 7031620-6 (Version None)
Quarter: 2010Q4

REPORT INFORMATION
  Report Type: 
  Country: None (occurrence: None)
  Receive Date: 20101006
  Receipt Date: 20101006
  Transmission Date: 20110411
  Serious: No
  Sender: FDA-Public Use
  Company Number: None

PATIENT
  Sex: Female
  Weight: 59.8748 kg

DRUGS (5)
  1. ZICAM NASAL GEL SWABS ADULT AND CHILD ZICAM -MATRIXX- [Suspect]
     Indication: NASOPHARYNGITIS
     Dosage: 1 SWAB 2-3 TIMES/DAY NASAL 4-5 DAYS, 2-3 TIMES/YR
     Route: 045
  2. ZICAM NASAL GEL SWABS ADULT AND CHILD ZICAM -MATRIXX- [Suspect]
     Indication: RESPIRATORY TRACT INFECTION
     Dosage: 1 SWAB 2-3 TIMES/DAY NASAL 4-5 DAYS, 2-3 TIMES/YR
     Route: 045
  3. ZICAM NASAL GEL, BOTTLE ZICAM -MATRIXX- [Suspect]
     Indication: NASOPHARYNGITIS
     Dosage: 1 SQUIRT IN EACH NOSTRIL 2-3 TIMES/DAY NASAL  4-5 DAYS, 2-3 TIMES/YR
     Route: 045
  4. ZICAM NASAL GEL, BOTTLE ZICAM -MATRIXX- [Suspect]
     Indication: RESPIRATORY TRACT INFECTION
     Dosage: 1 SQUIRT IN EACH NOSTRIL 2-3 TIMES/DAY NASAL  4-5 DAYS, 2-3 TIMES/YR
     Route: 045
  5. SUDAFED 12 HOUR [Concomitant]

REACTIONS (2)
  - ANOSMIA [None]
  - EMOTIONAL DISTRESS [None]
